FAERS Safety Report 8370355-4 (Version None)
Quarter: 2012Q2

REPORT INFORMATION
  Report Type: 
  Country: None (occurrence: None)
  Receive Date: 20120518
  Receipt Date: 20110801
  Transmission Date: 20120825
  Serious: No
  Sender: FDA-Public Use
  Company Number: US-ASTRAZENECA-2011SE55316

PATIENT
  Age: 72 Year
  Sex: Female

DRUGS (3)
  1. PAIN MEDICATION [Concomitant]
     Dosage: UNKNOWN
  2. CARDIOVASCULAR SYSTEM DRUGS [Concomitant]
     Dosage: UNKNOWN
  3. PRILOSEC OTC [Suspect]
     Dosage: UNKNOWN
     Route: 048

REACTIONS (3)
  - ORAL DISCOMFORT [None]
  - GLOSSODYNIA [None]
  - ORAL PAIN [None]
